FAERS Safety Report 8828756 (Version 2)
Quarter: 2014Q3

REPORT INFORMATION
  Report Type: Spontaneous
  Country: US (occurrence: US)
  Receive Date: 20121008
  Receipt Date: 20140801
  Transmission Date: 20150326
  Serious: Yes (Life-Threatening, Other)
  Sender: FDA-Public Use
  Company Number: US-ASTRAZENECA-2012SE76525

PATIENT
  Age: 62 Year
  Sex: Male

DRUGS (2)
  1. MUSCLE RELAXER [Concomitant]
     Active Substance: UNSPECIFIED INGREDIENT
  2. NEXIUM [Suspect]
     Active Substance: ESOMEPRAZOLE MAGNESIUM
     Indication: ULCER
     Route: 048

REACTIONS (5)
  - Dysgraphia [Unknown]
  - Coma [Unknown]
  - Myocardial infarction [Unknown]
  - Hernia [Not Recovered/Not Resolved]
  - Memory impairment [Unknown]
